FAERS Safety Report 5233964-7 (Version None)
Quarter: 2007Q1

REPORT INFORMATION
  Report Type: 
  Country: None (occurrence: None)
  Receive Date: 20070208
  Receipt Date: 20070203
  Transmission Date: 20070707
  Serious: Yes (Other)
  Sender: FDA-Public Use
  Company Number: US-PFIZER INC-2006141217

PATIENT
  Sex: Female
  Weight: 59.9 kg

DRUGS (2)
  1. DETROL LA [Suspect]
     Indication: HYPERTONIC BLADDER
  2. SYNTHROID [Concomitant]

REACTIONS (1)
  - BLOOD URINE PRESENT [None]
